FAERS Safety Report 5949154-6 (Version None)
Quarter: 2008Q4

REPORT INFORMATION
  Report Type: 
  Country: None (occurrence: None)
  Receive Date: 20081111
  Receipt Date: 20081103
  Transmission Date: 20090506
  Serious: Yes (Life-Threatening)
  Sender: FDA-Public Use
  Company Number: GB-PFIZER INC-2008093603

PATIENT
  Age: 14 Year
  Sex: Female
  Weight: 43 kg

DRUGS (5)
  1. HYDROCORTISONE SODIUM SUCCINATE [Suspect]
     Indication: COLITIS
     Route: 042
     Dates: start: 20080923
  2. INFLIXIMAB [Suspect]
     Indication: COLITIS
     Route: 042
     Dates: start: 20081013, end: 20081013
  3. CEFOTAXIME SODIUM [Concomitant]
  4. MESALAMINE [Concomitant]
  5. METRONIDAZOLE [Concomitant]

REACTIONS (2)
  - CONVULSION [None]
  - LEUKOENCEPHALOPATHY [None]
